FAERS Safety Report 5092042-0 (Version None)
Quarter: 2006Q3

REPORT INFORMATION
  Report Type: 
  Country: None (occurrence: None)
  Receive Date: 20060825
  Receipt Date: 20060811
  Transmission Date: 20061208
  Serious: Yes (Hospitalization, Other)
  Sender: FDA-Public Use
  Company Number: DEP_0008_2006

PATIENT
  Age: 61 Year
  Sex: Female

DRUGS (3)
  1. METFORMIN HCL [Suspect]
     Indication: DIABETES MELLITUS
     Dosage: 3 G QDAY
  2. FLUVASTATIN [Suspect]
     Dosage: 80 MG QDAY
  3. FLUVASTATIN [Suspect]
     Dosage: DF

REACTIONS (8)
  - ABDOMINAL PAIN UPPER [None]
  - BLOOD CREATININE INCREASED [None]
  - METABOLIC ACIDOSIS [None]
  - OLIGURIA [None]
  - OVERDOSE [None]
  - PANCREATITIS ACUTE [None]
  - RENAL FAILURE ACUTE [None]
  - VOMITING [None]
